FAERS Safety Report 8996811 (Version 1)
Quarter: 2012Q4

REPORT INFORMATION
  Report Type: Spontaneous
  Country: TR (occurrence: None)
  Receive Date: 20121220
  Receipt Date: 20121220
  Transmission Date: 20130627
  Serious: Yes (Other)
  Sender: FDA-Public Use
  Company Number: INT_00172_2012

PATIENT
  Age: 24 Month
  Sex: Male
  Weight: 12.7 kg

DRUGS (5)
  1. CEFEPIME (CEFEPIME) [Suspect]
  2. CYTARABINE (CYTARABINE) [Suspect]
     Dosage: (1 week 1 day) until not continuing
  3. ETOPOSIDE (ETOPOSIDE) [Suspect]
     Dosage: (1 week 1 day)
  4. CYTARABINE (CYTARABINE) 26 MG [Suspect]
     Dosage: (1 week 1 day)
  5. AMIKACIN (AMIKACIN) [Suspect]

REACTIONS (9)
  - Status epilepticus [None]
  - Neurotoxicity [None]
  - Staring [None]
  - Agitation [None]
  - Hallucination [None]
  - Communication disorder [None]
  - Haemoglobin decreased [None]
  - Platelet count decreased [None]
  - Respiratory rate increased [None]
